FAERS Safety Report 12358942 (Version 1)
Quarter: 2016Q2

REPORT INFORMATION
  Report Type: Spontaneous
  Country: US (occurrence: None)
  Receive Date: 20160511
  Receipt Date: 20160511
  Transmission Date: 20160815
  Serious: Yes (Life-Threatening, Hospitalization, Other)
  Sender: FDA-Public Use
  Company Number: None

PATIENT
  Age: 84 Year
  Sex: Male
  Weight: 85 kg

DRUGS (2)
  1. LOVENOX [Suspect]
     Active Substance: ENOXAPARIN SODIUM
     Indication: PROPHYLAXIS
     Route: 058
     Dates: start: 20160410, end: 20160415
  2. LOVENOX [Suspect]
     Active Substance: ENOXAPARIN SODIUM
     Indication: EMBOLIC STROKE
     Route: 058
     Dates: start: 20160410, end: 20160415

REACTIONS (7)
  - Atrial fibrillation [None]
  - Acute myocardial infarction [None]
  - Hypotension [None]
  - Coronary artery occlusion [None]
  - Incorrect dose administered [None]
  - Drug dispensing error [None]
  - Abdominal wall haemorrhage [None]

NARRATIVE: CASE EVENT DATE: 20160415
